FAERS Safety Report 8520922-X (Version None)
Quarter: 2012Q3

REPORT INFORMATION
  Report Type: 
  Country: None (occurrence: None)
  Receive Date: 20120719
  Receipt Date: 20120711
  Transmission Date: 20120928
  Serious: Yes (Other)
  Sender: FDA-Public Use
  Company Number: JP-PFIZER INC-2012165768

PATIENT
  Age: 73 Year
  Sex: Male

DRUGS (2)
  1. AMPICILLIN SODIUM AND SULBACTAM SODIUM [Suspect]
     Indication: PNEUMONIA ASPIRATION
     Dosage: UNK
  2. MEROPENEM [Suspect]
     Indication: PNEUMONIA ASPIRATION
     Dosage: UNK

REACTIONS (2)
  - SYSTEMIC CANDIDA [None]
  - SEPTIC SHOCK [None]
